FAERS Safety Report 7245802-1 (Version None)
Quarter: 2011Q1

REPORT INFORMATION
  Report Type: 
  Country: None (occurrence: None)
  Receive Date: 20110126
  Receipt Date: 20110124
  Transmission Date: 20110831
  Serious: Yes (Other)
  Sender: FDA-Public Use
  Company Number: DE-JNJFOC-20100308715

PATIENT
  Age: 5 Decade
  Sex: Male

DRUGS (5)
  1. REOPRO [Suspect]
     Indication: MYOCARDIAL INFARCTION
  2. CLOPIDOGREL [Concomitant]
     Indication: ILL-DEFINED DISORDER
  3. REOPRO [Suspect]
  4. REOPRO [Suspect]
  5. ACETYLSALICYLIC ACID SRT [Concomitant]
     Indication: ILL-DEFINED DISORDER

REACTIONS (1)
  - ANAPHYLACTIC SHOCK [None]
